FAERS Safety Report 5324637-0 (Version None)
Quarter: 2007Q2

REPORT INFORMATION
  Report Type: 
  Country: None (occurrence: None)
  Receive Date: 20070508
  Receipt Date: 20070424
  Transmission Date: 20071010
  Serious: Yes (Disabling, Other)
  Sender: FDA-Public Use
  Company Number: 155671ISR

PATIENT
  Sex: Female

DRUGS (2)
  1. METRONIDAZOLE [Suspect]
     Indication: PELVIC INFLAMMATORY DISEASE
     Dosage: 800 MG (400 MG, 2 IN 1 D) ORAL
     Route: 048
     Dates: start: 20070321, end: 20070406
  2. OFLOXACIN [Suspect]
     Indication: PELVIC INFLAMMATORY DISEASE
     Dosage: 800 MG (400 MG, 2 IN 1 D)  ORAL
     Route: 048
     Dates: start: 20070321, end: 20070402

REACTIONS (5)
  - CLONUS [None]
  - EPILEPSY [None]
  - EYE ROLLING [None]
  - PETIT MAL EPILEPSY [None]
  - URINARY INCONTINENCE [None]
